FAERS Safety Report 6082573-9 (Version None)
Quarter: 2009Q1

REPORT INFORMATION
  Report Type: 
  Country: None (occurrence: None)
  Receive Date: 20090218
  Receipt Date: 20090206
  Transmission Date: 20090719
  Serious: Yes (Hospitalization)
  Sender: FDA-Public Use
  Company Number: FR-PFIZER INC-2009168144

PATIENT

DRUGS (4)
  1. SALAZOPYRINE [Suspect]
     Indication: COLITIS
     Dosage: 500 MG, 2X/DAY
     Route: 048
     Dates: start: 20050101
  2. IMUREL [Suspect]
     Indication: COLITIS
     Dosage: FREQUENCY: EVERY DAY
     Route: 048
     Dates: start: 20050101
  3. FOSAMAX [Suspect]
     Dates: start: 20060101, end: 20081001
  4. CYCLOSPORINE [Suspect]
     Dates: start: 20040101, end: 20050101

REACTIONS (1)
  - OSTEONECROSIS [None]
